FAERS Safety Report 18895436 (Version 1)
Quarter: 2021Q1

REPORT INFORMATION
  Report Type: Spontaneous
  Country: US (occurrence: US)
  Receive Date: 20210216
  Receipt Date: 20210216
  Transmission Date: 20210420
  Serious: Yes (Other)
  Sender: FDA-Public Use
  Company Number: US-AUROBINDO-AUR-APL-2021-005377

PATIENT
  Age: 54 Year
  Sex: Male

DRUGS (1)
  1. ACETAMINOPHEN TABLET [Suspect]
     Active Substance: ACETAMINOPHEN
     Indication: RHINALGIA
     Dosage: UNK UNK, ONCE A DAY (DAILY INTRANASAL USE OF CRUSHED ACETAMINOPHEN TABLETS)
     Route: 045

REACTIONS (8)
  - Mucosal necrosis [Unknown]
  - Sinusitis [Unknown]
  - Incorrect route of product administration [Unknown]
  - Pneumococcal infection [Unknown]
  - Staphylococcal infection [Unknown]
  - Aspergillus infection [Unknown]
  - Intentional product misuse [Unknown]
  - Wrong technique in product usage process [Unknown]
